FAERS Safety Report 13224652 (Version 3)
Quarter: 2017Q1

REPORT INFORMATION
  Report Type: Spontaneous
  Country: ES (occurrence: ES)
  Receive Date: 20170213
  Receipt Date: 20170308
  Transmission Date: 20170428
  Serious: Yes (Hospitalization)
  Sender: FDA-Public Use
  Company Number: ES-ASTRAZENECA-2017SE14811

PATIENT
  Age: 72 Year
  Sex: Male

DRUGS (5)
  1. PRITOR [Suspect]
     Active Substance: TELMISARTAN
     Route: 065
  2. XIGDUO XR [Suspect]
     Active Substance: DAPAGLIFLOZIN PROPANEDIOL\METFORMIN HYDROCHLORIDE
     Route: 048
     Dates: start: 2015
  3. DAPAGLIFLOZIN [Suspect]
     Active Substance: DAPAGLIFLOZIN
     Route: 048
  4. CARDURAN NEO [Suspect]
     Active Substance: DOXAZOSIN MESYLATE
     Route: 065
  5. TORESEMIDE [Suspect]
     Active Substance: TORSEMIDE
     Route: 065

REACTIONS (8)
  - Diplopia [Unknown]
  - Pulse abnormal [Unknown]
  - Gait disturbance [Unknown]
  - Eyelid ptosis [Unknown]
  - Sinus tachycardia [Unknown]
  - Ischaemic stroke [Unknown]
  - Nasopharyngitis [Unknown]
  - Cardiomegaly [Unknown]

NARRATIVE: CASE EVENT DATE: 2017
